FAERS Safety Report 8520202-2 (Version None)
Quarter: 2012Q3

REPORT INFORMATION
  Report Type: 
  Country: None (occurrence: None)
  Receive Date: 20120719
  Receipt Date: 20120709
  Transmission Date: 20120928
  Serious: Yes (Other)
  Sender: FDA-Public Use
  Company Number: US-JNJFOC-20120704254

PATIENT
  Age: 88 Year
  Sex: Female
  Weight: 81.65 kg

DRUGS (5)
  1. METHOTREXATE [Suspect]
     Indication: RHEUMATOID ARTHRITIS
     Route: 065
  2. HYDROCODONE BITARTRATE [Suspect]
     Indication: RHEUMATOID ARTHRITIS
     Route: 065
     Dates: start: 19930101
  3. TYLENOL [Suspect]
     Indication: RHEUMATOID ARTHRITIS
     Route: 065
  4. REMICADE [Suspect]
     Indication: RHEUMATOID ARTHRITIS
     Route: 042
  5. TYLENOL [Suspect]
     Route: 065

REACTIONS (4)
  - UNEVALUABLE EVENT [None]
  - PAIN IN EXTREMITY [None]
  - DRUG INEFFECTIVE [None]
  - INSOMNIA [None]
